FAERS Safety Report 11155813 (Version 2)
Quarter: 2016Q2

REPORT INFORMATION
  Report Type: Report from Study
  Country: NL (occurrence: NL)
  Receive Date: 20150602
  Receipt Date: 20160610
  Transmission Date: 20160815
  Serious: Yes (Death, Hospitalization, Other)
  Sender: FDA-Public Use
  Company Number: NL-ACTELION-A-CH2011-55788

PATIENT
  Age: 40 Year
  Sex: Female
  Weight: 73 kg

DRUGS (33)
  1. ILOPROST [Concomitant]
     Active Substance: ILOPROST
     Indication: PULMONARY ARTERIAL HYPERTENSION
  2. FLOLAN [Concomitant]
     Active Substance: EPOPROSTENOL SODIUM
     Indication: PULMONARY ARTERIAL HYPERTENSION
  3. BUMETANIDE. [Concomitant]
     Active Substance: BUMETANIDE
     Dosage: 2 MG, BID
     Route: 048
  4. OXYCONTIN [Concomitant]
     Active Substance: OXYCODONE HYDROCHLORIDE
     Dosage: 5 MG, UNK
     Route: 048
  5. CALCICHEW [Concomitant]
     Active Substance: CALCIUM CARBONATE
     Dosage: 1.25 G, QD
     Route: 048
  6. LISINOPRIL. [Concomitant]
     Active Substance: LISINOPRIL
  7. KETANSERIN. [Concomitant]
     Active Substance: KETANSERIN
     Dosage: 40 MG, QD
  8. ENALAPRIL [Concomitant]
     Active Substance: ENALAPRIL
     Dosage: 2.5 MG, OD
     Route: 048
  9. LIDOCAINE AND PRILOCAINE [Concomitant]
     Active Substance: LIDOCAINE\PRILOCAINE
     Dosage: 25/25MG/G,1G IF NEEDED
     Route: 003
  10. TRACLEER [Suspect]
     Active Substance: BOSENTAN
     Indication: SKIN ULCER
     Dosage: 125 MG, BID
     Route: 048
     Dates: start: 20100219, end: 2011
  11. FERROUS FUMARATE [Concomitant]
     Active Substance: FERROUS FUMARATE
  12. METOCLOPRAMIDE. [Concomitant]
     Active Substance: METOCLOPRAMIDE
     Dosage: 10 MG, TID
     Route: 048
  13. FLOLAN [Concomitant]
     Active Substance: EPOPROSTENOL SODIUM
     Indication: SKIN ULCER
  14. CLEMASTINE [Concomitant]
     Active Substance: CLEMASTINE
     Dosage: 2 MG, BID
     Route: 048
  15. FUROSEMIDE. [Concomitant]
     Active Substance: FUROSEMIDE
  16. PCM [Concomitant]
     Dosage: 1000 MG, TID
     Route: 048
  17. BUMETANIDE. [Concomitant]
     Active Substance: BUMETANIDE
     Dosage: 3 MG, BID
     Route: 048
  18. SPIRONOLACTONE. [Concomitant]
     Active Substance: SPIRONOLACTONE
     Dosage: 25 MG, OD
     Route: 048
  19. SPIRONOLACTONE. [Concomitant]
     Active Substance: SPIRONOLACTONE
     Dosage: 50 MG, BID
     Route: 048
  20. TRACLEER [Suspect]
     Active Substance: BOSENTAN
     Indication: PULMONARY ARTERIAL HYPERTENSION
     Dosage: 125 MG, BID
     Route: 048
     Dates: start: 20110118, end: 20150410
  21. TRACLEER [Suspect]
     Active Substance: BOSENTAN
     Dosage: 62.5 MG, BID
     Route: 048
     Dates: start: 20100216, end: 20100218
  22. PANTOZOL [Concomitant]
     Active Substance: PANTOPRAZOLE SODIUM
     Dosage: 40 MG, OD
     Route: 048
  23. SILDENAFIL. [Concomitant]
     Active Substance: SILDENAFIL
     Dosage: 20 MG, TID
     Route: 048
  24. HYDROXYZINE [Concomitant]
     Active Substance: HYDROXYZINE\HYDROXYZINE HYDROCHLORIDE
     Dosage: 10 MG, QD
     Route: 048
  25. RANITIDINE. [Concomitant]
     Active Substance: RANITIDINE
  26. OXYCONTIN [Concomitant]
     Active Substance: OXYCODONE HYDROCHLORIDE
     Dosage: 20 MG, BID
     Route: 048
  27. BUMETANIDE. [Concomitant]
     Active Substance: BUMETANIDE
     Dosage: 1 MG, QD
     Route: 048
  28. ADALAT [Concomitant]
     Active Substance: NIFEDIPINE
  29. PRAVASTATIN [Concomitant]
     Active Substance: PRAVASTATIN\PRAVASTATIN SODIUM
     Dosage: 20 MG, OD
     Route: 048
  30. TREPROSTINIL [Concomitant]
     Active Substance: TREPROSTINIL
  31. ACETYLSALICYLZUUR [Concomitant]
     Active Substance: ASPIRIN
     Dosage: 80 MG, QD
     Route: 048
  32. PREDNISOLON [Concomitant]
     Active Substance: PREDNISOLONE
     Dosage: 12.5 MG, OD
     Route: 048
  33. RISEDRONIC ACID [Concomitant]
     Active Substance: RISEDRONIC ACID
     Dosage: 35 MG, Q1WEEK
     Route: 048

REACTIONS (14)
  - Right ventricular failure [Fatal]
  - Nausea [Recovered/Resolved]
  - Liver function test abnormal [Recovered/Resolved]
  - Bilirubin conjugated increased [Recovered/Resolved]
  - Dyspnoea [Not Recovered/Not Resolved]
  - Aspartate aminotransferase increased [Recovered/Resolved]
  - Blood alkaline phosphatase increased [Recovered/Resolved]
  - Oedema peripheral [Not Recovered/Not Resolved]
  - Vomiting [Recovered/Resolved]
  - Weight increased [Not Recovered/Not Resolved]
  - Alanine aminotransferase increased [Recovered/Resolved]
  - Cardiac failure [Unknown]
  - Electrolyte imbalance [Unknown]
  - Myalgia [Not Recovered/Not Resolved]

NARRATIVE: CASE EVENT DATE: 20110927
